FAERS Safety Report 4360461-3 (Version None)
Quarter: 2004Q2

REPORT INFORMATION
  Report Type: 
  Country: None (occurrence: None)
  Receive Date: 20040514
  Receipt Date: 20040505
  Transmission Date: 20050107
  Serious: Yes (Hospitalization)
  Sender: FDA-Public Use
  Company Number: US-SHR-04-024155

PATIENT
  Age: 66 Year
  Sex: Male
  Weight: 78.5 kg

DRUGS (2)
  1. BETASERON (INTERFERON BETA-1B)INJECTION, 250 UG [Suspect]
     Indication: MULTIPLE SCLEROSIS
     Dosage: 8 MIU, EVERY 2D
     Dates: start: 20040202, end: 20040101
  2. ACETYLSALICYLIC ACID SRT [Concomitant]

REACTIONS (9)
  - ATRIOVENTRICULAR BLOCK [None]
  - CARDIAC FAILURE CONGESTIVE [None]
  - CARDIOMEGALY [None]
  - CARDIOMYOPATHY [None]
  - CHEST PAIN [None]
  - OXYGEN SATURATION DECREASED [None]
  - PERICARDITIS [None]
  - PLEURAL EFFUSION [None]
  - PNEUMONITIS [None]
